FAERS Safety Report 9876763 (Version 2)
Quarter: 2014Q1

REPORT INFORMATION
  Report Type: Other
  Country: US (occurrence: US)
  Receive Date: 20140206
  Receipt Date: 20140206
  Transmission Date: 20141002
  Serious: No
  Sender: FDA-Public Use
  Company Number: US-ACORDA-ACO_38021_2013

PATIENT
  Sex: Female
  Weight: 63.39 kg

DRUGS (3)
  1. AMPYRA [Suspect]
     Indication: MULTIPLE SCLEROSIS
     Dosage: 10 MG, BID
     Route: 048
     Dates: start: 201307, end: 201308
  2. TYSABRI [Concomitant]
     Indication: MULTIPLE SCLEROSIS
     Dosage: 300 MG/15 ML, Q 4 WEEKS
     Route: 042
  3. IMIPRAMINE HCL [Concomitant]
     Indication: PAIN
     Dosage: 150 MG, QD
     Route: 048

REACTIONS (1)
  - Nightmare [Recovered/Resolved]
